FAERS Safety Report 26074660 (Version 1)
Quarter: 2025Q4

REPORT INFORMATION
  Report Type: Spontaneous
  Country: US (occurrence: None)
  Receive Date: 20251120
  Receipt Date: 20251120
  Transmission Date: 20260117
  Serious: No
  Sender: FDA-CTU
  Company Number: None

PATIENT
  Age: 16 Year
  Sex: Female

DRUGS (1)
  1. TUBERSOL [Suspect]
     Active Substance: TUBERCULIN PURIFIED PROTEIN DERIVATIVE
     Dosage: OTHER STRENGTH : 5 TU/0.1 ML;?OTHER FREQUENCY : ONCE;?

REACTIONS (3)
  - Middle insomnia [None]
  - Eye swelling [None]
  - Tuberculin test positive [None]

NARRATIVE: CASE EVENT DATE: 20251119
